FAERS Safety Report 18892320 (Version 3)
Quarter: 2021Q1

REPORT INFORMATION
  Report Type: Spontaneous
  Country: US (occurrence: US)
  Receive Date: 20210215
  Receipt Date: 20210318
  Transmission Date: 20210420
  Serious: Yes (Other)
  Sender: FDA-Public Use
  Company Number: US-GLAXOSMITHKLINE-US2021GSK040595

PATIENT
  Sex: Male

DRUGS (4)
  1. ZANTAC [Suspect]
     Active Substance: RANITIDINE HYDROCHLORIDE
     Indication: RECTAL HAEMORRHAGE
     Dosage: 300 MG, QD
     Route: 065
     Dates: start: 201702, end: 202001
  2. ZANTAC [Suspect]
     Active Substance: RANITIDINE HYDROCHLORIDE
     Indication: ABDOMINAL DISCOMFORT
     Dosage: 150 MG PRESCRIPTION
     Route: 065
     Dates: start: 201702, end: 202001
  3. ZANTAC [Suspect]
     Active Substance: RANITIDINE HYDROCHLORIDE
     Indication: RECTAL HAEMORRHAGE
     Dosage: 300 MG, QD
     Route: 065
     Dates: start: 201702, end: 202001
  4. ZANTAC [Suspect]
     Active Substance: RANITIDINE HYDROCHLORIDE
     Indication: ABDOMINAL DISCOMFORT
     Dosage: 150 MG PRESCRIPTION
     Route: 065
     Dates: start: 201702, end: 202001

REACTIONS (1)
  - Colorectal cancer [Unknown]
